FAERS Safety Report 25099702 (Version 1)
Quarter: 2025Q1

REPORT INFORMATION
  Report Type: Spontaneous
  Country: US (occurrence: US)
  Receive Date: 20250320
  Receipt Date: 20250320
  Transmission Date: 20250408
  Serious: No
  Sender: SANOFI AVENTIS
  Company Number: US-SA-2025SA080992

PATIENT
  Sex: Female
  Weight: 85 kg

DRUGS (2)
  1. DUPIXENT [Suspect]
     Active Substance: DUPILUMAB
     Indication: Dermatitis atopic
     Route: 058
  2. RINVOQ [Suspect]
     Active Substance: UPADACITINIB

REACTIONS (3)
  - Hunger [Unknown]
  - Fatigue [Unknown]
  - Muscle spasms [Unknown]
